FAERS Safety Report 20008112 (Version 2)
Quarter: 2021Q4

REPORT INFORMATION
  Report Type: Report from Study
  Country: ZA (occurrence: ZA)
  Receive Date: 20211029
  Receipt Date: 20211118
  Transmission Date: 20220303
  Serious: Yes (Hospitalization, Other)
  Sender: FDA-Public Use
  Company Number: ZA-SA-SAC20210825001056

PATIENT
  Age: 66 Year
  Sex: Female

DRUGS (3)
  1. TERIFLUNOMIDE [Interacting]
     Active Substance: TERIFLUNOMIDE
     Indication: Relapsing-remitting multiple sclerosis
     Dosage: 14 MG, QD
     Route: 048
  2. COVID-19 VACCINE NOS [Interacting]
     Active Substance: COVID-19 VACCINE NOS
     Indication: Immunisation
     Dosage: DOSE 1
     Route: 065
  3. COVID-19 VACCINE NOS [Interacting]
     Active Substance: COVID-19 VACCINE NOS
     Dosage: DOSE 2
     Route: 065
     Dates: start: 202107

REACTIONS (17)
  - Pulmonary thrombosis [Not Recovered/Not Resolved]
  - Deep vein thrombosis [Not Recovered/Not Resolved]
  - Anaemia [Not Recovered/Not Resolved]
  - Near death experience [Not Recovered/Not Resolved]
  - Laryngeal oedema [Recovering/Resolving]
  - Depression [Not Recovered/Not Resolved]
  - Malaise [Not Recovered/Not Resolved]
  - Fatigue [Not Recovered/Not Resolved]
  - Drug interaction [Not Recovered/Not Resolved]
  - Lip discolouration [Not Recovered/Not Resolved]
  - Pallor [Not Recovered/Not Resolved]
  - Hyperhidrosis [Not Recovered/Not Resolved]
  - Peripheral swelling [Not Recovered/Not Resolved]
  - Muscular weakness [Not Recovered/Not Resolved]
  - Oropharyngeal pain [Recovering/Resolving]
  - Cough [Not Recovered/Not Resolved]
  - Nerve injury [Recovering/Resolving]

NARRATIVE: CASE EVENT DATE: 20210801
